FAERS Safety Report 8802874 (Version 2)
Quarter: 2012Q4

REPORT INFORMATION
  Report Type: Report from Study
  Country: DE (occurrence: DE)
  Receive Date: 20120921
  Receipt Date: 20121119
  Transmission Date: 20130627
  Serious: Yes (Hospitalization)
  Sender: FDA-Public Use
  Company Number: DE-BRISTOL-MYERS SQUIBB COMPANY-16970162

PATIENT
  Age: 69 Year
  Sex: Male
  Weight: 60 kg

DRUGS (7)
  1. CETUXIMAB [Suspect]
     Indication: HEAD AND NECK CANCER
     Dosage: Last dose:27Aug2012
     Dates: start: 20120615, end: 2012
  2. CISPLATIN [Suspect]
     Indication: HEAD AND NECK CANCER
     Dates: start: 20120816, end: 2012
  3. 5-FLUOROURACIL [Suspect]
     Indication: HEAD AND NECK CANCER
     Dates: start: 20120816, end: 2012
  4. DOCETAXEL [Suspect]
     Indication: HEAD AND NECK CANCER
     Dosage: Lastdose:13Aug2012
     Dates: start: 20120616, end: 2012
  5. TAVEGIL [Suspect]
     Dates: start: 20120616, end: 20120824
  6. SOSTRIL [Suspect]
     Dates: start: 20120616, end: 20120824
  7. PREDNISOLONE [Suspect]
     Dates: start: 20120616, end: 20120824

REACTIONS (1)
  - Gastric perforation [Recovered/Resolved with Sequelae]
